FAERS Safety Report 10221765 (Version 1)
Quarter: 2014Q2

REPORT INFORMATION
  Report Type: Spontaneous
  Country: US (occurrence: US)
  Receive Date: 20140606
  Receipt Date: 20140606
  Transmission Date: 20141212
  Serious: No
  Sender: FDA-Public Use
  Company Number: US-BIOMARINAP-US-2013-100987

PATIENT
  Sex: Female

DRUGS (1)
  1. NAGLAZYME [Suspect]
     Indication: MUCOPOLYSACCHARIDOSIS VI
     Dosage: 45 MG, QW
     Route: 041
     Dates: start: 20080915

REACTIONS (3)
  - Pain in extremity [Not Recovered/Not Resolved]
  - Abdominal discomfort [Unknown]
  - Vomiting [Recovered/Resolved]
